FAERS Safety Report 18157599 (Version 1)
Quarter: 2020Q3

REPORT INFORMATION
  Report Type: Spontaneous
  Country: US (occurrence: US)
  Receive Date: 20200817
  Receipt Date: 20200817
  Transmission Date: 20201103
  Serious: No
  Sender: FDA-Public Use
  Company Number: US-AMGEN-USASP2020121748

PATIENT
  Age: 69 Year
  Sex: Female

DRUGS (2)
  1. REPATHA [Suspect]
     Active Substance: EVOLOCUMAB
     Indication: BLOOD CHOLESTEROL INCREASED
     Dosage: 140 MILLIGRAM, QMO
     Route: 065
     Dates: start: 2017, end: 201906
  2. REPATHA [Suspect]
     Active Substance: EVOLOCUMAB
     Dosage: 140 MILLIGRAM, QMO
     Route: 065
     Dates: start: 201906

REACTIONS (5)
  - Injection site indentation [Unknown]
  - Device use error [Unknown]
  - Device difficult to use [Unknown]
  - Off label use [Unknown]
  - Injection site pain [Unknown]

NARRATIVE: CASE EVENT DATE: 2017
